FAERS Safety Report 9233650 (Version 1)
Quarter: 2013Q2

REPORT INFORMATION
  Report Type: Report from Study
  Country: US (occurrence: US)
  Receive Date: 20130416
  Receipt Date: 20130416
  Transmission Date: 20140414
  Serious: Yes (Death, Other)
  Sender: FDA-Public Use
  Company Number: US-TEVA-392735USA

PATIENT
  Age: 50 Year
  Sex: Male

DRUGS (7)
  1. CLOZAPINE [Suspect]
     Dosage: 3 DOSAGE FORMS DAILY; 300
     Route: 048
  2. VALPROATE SEMISODIUM [Concomitant]
     Dosage: 2 DOSAGE FORMS DAILY; 250
  3. INHALERS [Concomitant]
  4. OMEPRAZOLE [Concomitant]
  5. HAY FEVER PILLS [Concomitant]
  6. PARACETAMOL [Concomitant]
     Dosage: PRN
  7. ACETYLSALICYLIC ACID [Concomitant]
     Dosage: PRN

REACTIONS (2)
  - Death [Fatal]
  - Cardiac arrest [Unknown]
